FAERS Safety Report 5753649-8 (Version None)
Quarter: 2008Q2

REPORT INFORMATION
  Report Type: 
  Country: None (occurrence: None)
  Receive Date: 20080530
  Receipt Date: 20080526
  Transmission Date: 20081010
  Serious: Yes (Life-Threatening, Hospitalization)
  Sender: FDA-Public Use
  Company Number: JP-AVENTIS-200810999JP

PATIENT
  Age: 42 Year
  Sex: Female
  Weight: 77 kg

DRUGS (8)
  1. AMARYL [Suspect]
     Route: 048
     Dates: start: 20080324, end: 20080324
  2. AMARYL [Suspect]
     Route: 048
     Dates: start: 20010101
  3. MELBIN                             /00082702/ [Suspect]
     Route: 048
     Dates: start: 20080324, end: 20080324
  4. MELBIN                             /00082702/ [Suspect]
     Dosage: DOSE: 1 TBLS/MEAL; FREQUENCY: AFTER MEALS
     Route: 048
     Dates: start: 20010101
  5. GLUCOBAY [Concomitant]
     Dosage: FREQUENCY: BEFORE MEALS
     Route: 048
     Dates: start: 20010101
  6. TETRAMIDE [Concomitant]
     Indication: ADJUSTMENT DISORDER
     Dosage: DOSE QUANTITY: 30
     Route: 048
     Dates: start: 20010101
  7. MEILAX [Concomitant]
     Indication: ADJUSTMENT DISORDER
     Route: 048
     Dates: start: 20010101
  8. ABILIT [Concomitant]
     Indication: ADJUSTMENT DISORDER
     Dosage: DOSE QUANTITY: 150; FREQUENCY: AFTER MEALS
     Route: 048
     Dates: start: 20010101

REACTIONS (2)
  - INTENTIONAL OVERDOSE [None]
  - LACTIC ACIDOSIS [None]
